FAERS Safety Report 16829692 (Version 1)
Quarter: 2019Q3

REPORT INFORMATION
  Report Type: Spontaneous
  Country: US (occurrence: US)
  Receive Date: 20190919
  Receipt Date: 20190919
  Transmission Date: 20191005
  Serious: Yes (Hospitalization)
  Sender: FDA-Public Use
  Company Number: US-BAUSCH-BL-2019-025797

PATIENT
  Age: 85 Year
  Sex: Male

DRUGS (3)
  1. AMLODIPINE [Concomitant]
     Active Substance: AMLODIPINE BESYLATE
     Indication: PRODUCT USED FOR UNKNOWN INDICATION
  2. TAMSULOSIN [Concomitant]
     Active Substance: TAMSULOSIN
     Indication: PRODUCT USED FOR UNKNOWN INDICATION
  3. TIMOLOL. [Suspect]
     Active Substance: TIMOLOL
     Indication: PRODUCT USED FOR UNKNOWN INDICATION
     Dosage: REPEATED INSTILLATION INTO HIS RIGHT EYE, HIGH DOSES
     Route: 061

REACTIONS (6)
  - Hyperkalaemia [Recovered/Resolved]
  - Hypoglycaemia [Recovering/Resolving]
  - Toxicity to various agents [Unknown]
  - Sinus bradycardia [Recovered/Resolved]
  - Blood pressure decreased [Unknown]
  - Atrioventricular block first degree [Recovered/Resolved]
